FAERS Safety Report 16411754 (Version 1)
Quarter: 2019Q2

REPORT INFORMATION
  Report Type: Spontaneous
  Country: FR (occurrence: FR)
  Receive Date: 20190610
  Receipt Date: 20190610
  Transmission Date: 20190711
  Serious: Yes (Other)
  Sender: FDA-Public Use
  Company Number: FR-NAPPMUNDI-GBR-2019-0067090

PATIENT
  Age: 54 Year
  Sex: Male

DRUGS (6)
  1. MORPHINE SULFATE. [Suspect]
     Active Substance: MORPHINE SULFATE
     Indication: PRODUCT USED FOR UNKNOWN INDICATION
     Dosage: 50 MG (50 MG, EVERY 15 DAYS)
     Route: 042
  2. NON-PMN BUPRENORPHINE [Suspect]
     Active Substance: BUPRENORPHINE
     Indication: PRODUCT USED FOR UNKNOWN INDICATION
     Dosage: UNK
     Route: 051
  3. NON-PMN MORPHINE SULFATE [Suspect]
     Active Substance: MORPHINE SULFATE
     Dosage: 50 MG, (50 MG, EVERY 15 DAYS)
     Route: 045
  4. COCAINE [Suspect]
     Active Substance: COCAINE
     Dosage: 2 G, (1-2 G, Q3W)
     Route: 042
  5. NON-PMN MORPHINE SULFATE [Suspect]
     Active Substance: MORPHINE SULFATE
     Indication: PRODUCT USED FOR UNKNOWN INDICATION
     Dosage: 50 MG (50 MG, EVERY 15 DAYS)
     Route: 051
  6. COCAINE [Suspect]
     Active Substance: COCAINE
     Indication: PRODUCT USED FOR UNKNOWN INDICATION
     Dosage: 2 G, (1-2 G, Q3W)
     Route: 006

REACTIONS (5)
  - Cluster headache [Not Recovered/Not Resolved]
  - Nasal septum deviation [Unknown]
  - Intentional product use issue [Unknown]
  - Substance abuse [Unknown]
  - Facial bones fracture [Unknown]
